FAERS Safety Report 19310782 (Version 1)
Quarter: 2021Q2

REPORT INFORMATION
  Report Type: Spontaneous
  Country: BR (occurrence: BR)
  Receive Date: 20210526
  Receipt Date: 20210526
  Transmission Date: 20210717
  Serious: Yes (Other)
  Sender: FDA-Public Use
  Company Number: BR-ORGANON-O2105BRA001796

PATIENT
  Age: 41 Year
  Sex: Female
  Weight: 71 kg

DRUGS (6)
  1. NUVARING [Suspect]
     Active Substance: ETHINYL ESTRADIOL\ETONOGESTREL
     Dosage: VAGINAL RING
     Route: 067
     Dates: start: 20210429, end: 20210519
  2. NUVARING [Suspect]
     Active Substance: ETHINYL ESTRADIOL\ETONOGESTREL
     Indication: CONTRACEPTION
     Dosage: VAGINAL RING
     Route: 067
     Dates: start: 2005
  3. NUVARING [Suspect]
     Active Substance: ETHINYL ESTRADIOL\ETONOGESTREL
     Dosage: VAGINAL RING
     Route: 067
     Dates: start: 2017
  4. NUVARING [Suspect]
     Active Substance: ETHINYL ESTRADIOL\ETONOGESTREL
     Dosage: VAGINAL RING
     Route: 067
     Dates: start: 20210304, end: 20210330
  5. NUVARING [Suspect]
     Active Substance: ETHINYL ESTRADIOL\ETONOGESTREL
     Dosage: VAGINAL RING (USED FOR 5 YEARS)
     Route: 067
  6. NUVARING [Suspect]
     Active Substance: ETHINYL ESTRADIOL\ETONOGESTREL
     Dosage: VAGINAL RING
     Route: 067
     Dates: start: 20210401, end: 20210421

REACTIONS (6)
  - Inappropriate schedule of product administration [Unknown]
  - Incorrect product administration duration [Unknown]
  - Vaginal haemorrhage [Unknown]
  - Menstruation irregular [Not Recovered/Not Resolved]
  - Autoimmune thyroiditis [Not Recovered/Not Resolved]
  - Obsessive-compulsive disorder [Not Recovered/Not Resolved]

NARRATIVE: CASE EVENT DATE: 2011
